FAERS Safety Report 9018047 (Version 1)
Quarter: 2013Q1

REPORT INFORMATION
  Report Type: Spontaneous
  Country: US (occurrence: None)
  Receive Date: 20130110
  Receipt Date: 20130110
  Transmission Date: 20140127
  Serious: No
  Sender: FDA-Public Use
  Company Number: None

PATIENT
  Sex: Male

DRUGS (3)
  1. PEGASYS [Suspect]
     Indication: HEPATITIS C
     Dosage: 180 MCG QWEEK SQ
     Route: 058
     Dates: start: 20121024, end: 20121227
  2. RIBAVIRIN [Suspect]
     Route: 048
  3. INCIVEK [Suspect]
     Dosage: 750 TID PO
     Route: 048

REACTIONS (3)
  - Rash [None]
  - Varicella [None]
  - Measles [None]
